FAERS Safety Report 6966923-4 (Version None)
Quarter: 2010Q3

REPORT INFORMATION
  Report Type: 
  Country: None (occurrence: None)
  Receive Date: 20100906
  Receipt Date: 20100826
  Transmission Date: 20110219
  Serious: Yes (Other)
  Sender: FDA-Public Use
  Company Number: US-NOVOPROD-310021

PATIENT
  Age: 59 Year
  Sex: Female
  Weight: 65.76 kg

DRUGS (8)
  1. VICTOZA [Suspect]
     Indication: TYPE 2 DIABETES MELLITUS
     Dosage: 1.8 MG, QD
     Route: 058
     Dates: start: 20100301, end: 20100606
  2. VICTOZA [Suspect]
     Dosage: UNK
     Route: 058
     Dates: start: 20100301
  3. AVAPRO [Concomitant]
     Indication: HYPERTENSION
     Dosage: 300 MG, QD
     Route: 048
     Dates: end: 20100606
  4. AVAPRO [Concomitant]
     Dosage: 150 MG, QD
     Dates: start: 20100614
  5. ZIAC                               /01166101/ [Concomitant]
     Indication: HYPERTENSION
     Dosage: 10/6.25 MG, QD
     Route: 048
     Dates: end: 20100606
  6. GLUMETZA [Concomitant]
     Indication: TYPE 2 DIABETES MELLITUS
     Dosage: 500 MG, QD
     Route: 048
  7. CRESTOR [Concomitant]
     Indication: BLOOD CHOLESTEROL INCREASED
     Dosage: 5 MG, QD
     Route: 048
  8. ELAVIL [Concomitant]
     Indication: IRRITABLE BOWEL SYNDROME
     Dosage: 25 MG, QD
     Route: 048

REACTIONS (7)
  - ARTHRALGIA [None]
  - DIZZINESS POSTURAL [None]
  - HYPOTENSION [None]
  - LOSS OF CONSCIOUSNESS [None]
  - MEMORY IMPAIRMENT [None]
  - SYNCOPE [None]
  - WEIGHT DECREASED [None]
